FAERS Safety Report 5130575-9 (Version None)
Quarter: 2006Q4

REPORT INFORMATION
  Report Type: 
  Country: None (occurrence: None)
  Receive Date: 20061017
  Receipt Date: 20061017
  Transmission Date: 20070319
  Serious: Yes (Other)
  Sender: FDA-Public Use
  Company Number: None

PATIENT
  Age: 24 Year
  Sex: Male
  Weight: 72.5755 kg

DRUGS (1)
  1. PROPECIA [Suspect]
     Indication: ALOPECIA
     Dosage: DAILY
     Dates: start: 20010901, end: 20051102

REACTIONS (3)
  - ERECTILE DYSFUNCTION [None]
  - LIBIDO DECREASED [None]
  - PENILE PAIN [None]
